FAERS Safety Report 5235989-4 (Version None)
Quarter: 2007Q1

REPORT INFORMATION
  Report Type: 
  Country: None (occurrence: None)
  Receive Date: 20061208
  Receipt Date: 20051215
  Transmission Date: 20070707
  Serious: Yes (Other)
  Sender: FDA-Public Use
  Company Number: 2005UW18866

PATIENT
  Age: 70 Year
  Sex: Male
  Weight: 113.39 kg

DRUGS (5)
  1. CRESTOR [Suspect]
     Indication: BLOOD CHOLESTEROL INCREASED
     Dosage: 5 MG PO
     Route: 048
     Dates: start: 20051201
  2. TOPROL-XL [Concomitant]
  3. ALTACE [Concomitant]
  4. FUROSEMIDE [Concomitant]
  5. NEXIUM [Concomitant]

REACTIONS (2)
  - ABNORMAL DREAMS [None]
  - ARTHRALGIA [None]
